FAERS Safety Report 9050029 (Version 1)
Quarter: 2013Q1

REPORT INFORMATION
  Report Type: Spontaneous
  Country: US (occurrence: US)
  Receive Date: 20130205
  Receipt Date: 20130205
  Transmission Date: 20140127
  Serious: No
  Sender: FDA-Public Use
  Company Number: US-GLAXOSMITHKLINE-A0997841A

PATIENT
  Age: 81 Year
  Sex: Female

DRUGS (4)
  1. ARIXTRA [Suspect]
     Indication: THROMBOSIS
     Dosage: 7.5MG PER DAY
     Route: 058
     Dates: start: 2011
  2. BLOOD PRESSURE MEDICATION [Concomitant]
  3. LASIX [Concomitant]
  4. CHEMOTHERAPY [Concomitant]

REACTIONS (1)
  - Skin discolouration [Unknown]
